FAERS Safety Report 7503748-5 (Version None)
Quarter: 2011Q2

REPORT INFORMATION
  Report Type: 
  Country: None (occurrence: None)
  Receive Date: 20110525
  Receipt Date: 20110506
  Transmission Date: 20111010
  Serious: No
  Sender: FDA-Public Use
  Company Number: US-B.I. PHARMACEUTICALS,INC./RIDGEFIELD-2011-BP-09200BP

PATIENT
  Sex: Female

DRUGS (8)
  1. ISOSORBIDE MONONIT [Concomitant]
  2. CLONIDINE HCL [Concomitant]
  3. TRAMADOL HCL [Concomitant]
  4. SOTALOL HCL [Concomitant]
  5. OMEPRAZOLE [Concomitant]
  6. NITROLINGUAL [Concomitant]
  7. PRADAXA [Suspect]
     Indication: ANTICOAGULANT THERAPY
  8. AMLODIPINE [Concomitant]

REACTIONS (1)
  - FLATULENCE [None]
